FAERS Safety Report 13581823 (Version 1)
Quarter: 2017Q2

REPORT INFORMATION
  Report Type: Report from Study
  Country: SE (occurrence: SE)
  Receive Date: 20170525
  Receipt Date: 20170525
  Transmission Date: 20170830
  Serious: Yes (Hospitalization, Other)
  Sender: FDA-Public Use
  Company Number: SE-INCYTE CORPORATION-2016IN008439

PATIENT

DRUGS (4)
  1. JAKAVI [Suspect]
     Active Substance: RUXOLITINIB
     Indication: MYELOFIBROSIS
     Dosage: 5 MG, BID
     Route: 048
     Dates: start: 20150115
  2. TROMBYL [Concomitant]
     Active Substance: ASPIRIN
     Indication: PROPHYLAXIS
     Dosage: 75 MG, QD
     Route: 065
     Dates: start: 20081013
  3. GLIBENCLAMIDE [Concomitant]
     Active Substance: GLYBURIDE
     Indication: DIABETES MELLITUS
     Dosage: 1.5 MG, QD
     Route: 065
     Dates: start: 20150111
  4. ALLOPURINOL. [Concomitant]
     Active Substance: ALLOPURINOL
     Indication: GOUT
     Dosage: 100 MG, QD
     Route: 065
     Dates: start: 20141125

REACTIONS (7)
  - Chronic obstructive pulmonary disease [Recovered/Resolved]
  - Neutrophil count increased [Unknown]
  - C-reactive protein increased [Unknown]
  - Pneumonia [Unknown]
  - Pyruvate kinase increased [Unknown]
  - Chronic obstructive pulmonary disease [Recovered/Resolved]
  - Empyema [Recovered/Resolved]

NARRATIVE: CASE EVENT DATE: 201501
